FAERS Safety Report 10035464 (Version 3)
Quarter: 2014Q2

REPORT INFORMATION
  Report Type: Spontaneous
  Country: JP (occurrence: None)
  Receive Date: 20140321
  Receipt Date: 20140625
  Transmission Date: 20141212
  Serious: Yes (Disabling, Other)
  Sender: FDA-Public Use
  Company Number: 1403-0531

PATIENT
  Age: 84 Year
  Sex: Male

DRUGS (10)
  1. EYLEA (AFLIBERCEPT) INJECTION)AFLIBERCEPT) [Suspect]
     Indication: AGE-RELATED MACULAR DEGENERATION
     Route: 031
     Dates: start: 20130911, end: 20130911
  2. TAGAMET (CIMETIDINE) [Concomitant]
  3. CONIEL (BENIDIPINE HYDROCHLORIDE) (TABLET) [Concomitant]
  4. ITOROL (ISOSORBIDE MONONITRATE) (TABLET) [Concomitant]
  5. GLIMICRON (GLICLAZIDE) [Concomitant]
  6. SIGMART (NICORANDIL) [Concomitant]
  7. KAMAG G (MAGNESIUM OXIDE) (ORAL POWDER) [Concomitant]
  8. LIPITOR (ATORVASTATIN CLACIUM) (TABLET) [Concomitant]
  9. NITRODERM (GLYCERYL TRINITRATE) [Concomitant]
  10. BAYASPIRIN (ACETYLSALICYLIC ACID) (ACETYLSALICYLIC ACID) [Suspect]
     Indication: PRODUCT USED FOR UNKNOWN INDICATION

REACTIONS (3)
  - Retinal haemorrhage [None]
  - Vitreous haemorrhage [None]
  - Malaise [None]
